FAERS Safety Report 21979737 (Version 1)
Quarter: 2023Q1

REPORT INFORMATION
  Report Type: Report from Study
  Country: CA (occurrence: CA)
  Receive Date: 20230210
  Receipt Date: 20230210
  Transmission Date: 20230418
  Serious: Yes (Death, Other)
  Sender: FDA-Public Use
  Company Number: CA-TAKEDA-2023TUS014847

PATIENT
  Age: 84 Year
  Sex: Male

DRUGS (4)
  1. VEDOLIZUMAB [Suspect]
     Active Substance: VEDOLIZUMAB
     Indication: Colitis ulcerative
     Dosage: 300 MILLIGRAM
     Route: 042
     Dates: start: 20220607, end: 20230105
  2. Cortiment [Concomitant]
     Dosage: 9 MILLIGRAM, QD
     Dates: start: 20220502
  3. Salofalk [Concomitant]
     Dosage: UNK
     Dates: start: 2005
  4. IMURAN [Concomitant]
     Active Substance: AZATHIOPRINE
     Dosage: UNK
     Dates: start: 20220506

REACTIONS (1)
  - Death [Fatal]
